FAERS Safety Report 9729396 (Version 1)
Quarter: 2013Q4

REPORT INFORMATION
  Report Type: Spontaneous
  Country: HU (occurrence: HU)
  Receive Date: 20131204
  Receipt Date: 20131204
  Transmission Date: 20140711
  Serious: Yes (Life-Threatening)
  Sender: FDA-Public Use
  Company Number: HU-TEVA-446092ISR

PATIENT
  Age: 82 Year
  Sex: Female

DRUGS (7)
  1. SALSOL 500 ML INFUSION SOLUTION [Suspect]
     Route: 042
     Dates: start: 20131112, end: 20131118
  2. CHINOTAL [Suspect]
     Indication: ARTERIOSCLEROSIS
     Dosage: 200 MILLIGRAM DAILY;
     Route: 042
     Dates: start: 20131112, end: 20131118
  3. VM VOGT MEDICAL INFUSION ADAPTER [Suspect]
     Dates: start: 20131112, end: 20131118
  4. MERAMYL [Concomitant]
     Indication: HYPERTENSION
     Dosage: 10 MILLIGRAM DAILY;
     Route: 048
  5. MODUXIN MR [Concomitant]
     Indication: MYOCARDIAL ISCHAEMIA
     Dosage: 70 MILLIGRAM DAILY;
     Route: 048
  6. CORINFAR [Concomitant]
     Indication: HYPERTENSION
     Dosage: 40 MILLIGRAM DAILY;
     Route: 048
  7. CONCOR [Concomitant]
     Indication: HYPERTENSION
     Dosage: 5 MILLIGRAM DAILY;
     Route: 048

REACTIONS (7)
  - Respiration abnormal [Recovered/Resolved]
  - Dyspnoea [Recovered/Resolved]
  - Cyanosis [Recovered/Resolved]
  - Prolonged expiration [Recovered/Resolved]
  - Tremor [Recovered/Resolved]
  - Erythema [Recovered/Resolved]
  - Nausea [Recovered/Resolved]
